FAERS Safety Report 11140051 (Version 2)
Quarter: 2016Q2

REPORT INFORMATION
  Report Type: Spontaneous
  Country: US (occurrence: US)
  Receive Date: 20150527
  Receipt Date: 20160523
  Transmission Date: 20160815
  Serious: Yes (Other)
  Sender: FDA-Public Use
  Company Number: US-ENDO PHARMACEUTICALS INC.-SPLN20140078

PATIENT
  Sex: Male
  Weight: 84 kg

DRUGS (1)
  1. SUPPRELIN LA [Suspect]
     Active Substance: HISTRELIN ACETATE
     Indication: PRECOCIOUS PUBERTY
     Route: 058
     Dates: start: 200810, end: 201305

REACTIONS (4)
  - Expired product administered [Not Recovered/Not Resolved]
  - Device breakage [Not Recovered/Not Resolved]
  - Procedural complication [Not Recovered/Not Resolved]
  - Delayed puberty [Not Recovered/Not Resolved]

NARRATIVE: CASE EVENT DATE: 2012
